FAERS Safety Report 5100929-5 (Version None)
Quarter: 2006Q3

REPORT INFORMATION
  Report Type: 
  Country: None (occurrence: None)
  Receive Date: 20060731
  Receipt Date: 20060616
  Transmission Date: 20061208
  Serious: No
  Sender: FDA-Public Use
  Company Number: 2006PV015702

PATIENT
  Age: 57 Year
  Sex: Female
  Weight: 107.5025 kg

DRUGS (9)
  1. BYETTA [Suspect]
     Indication: DIABETES MELLITUS NON-INSULIN-DEPENDENT
     Dosage: 5 MCG;BID;SC
     Route: 058
     Dates: start: 20060614
  2. AVAPRO [Concomitant]
  3. GLUCOPHAGE [Concomitant]
  4. LEVOXYL [Concomitant]
  5. ZOCOR [Concomitant]
  6. TRICOR [Concomitant]
  7. LANTUS [Concomitant]
  8. NIASTAN [Concomitant]
  9. ASPIRIN [Concomitant]

REACTIONS (2)
  - BALANCE DISORDER [None]
  - DYSGRAPHIA [None]
